FAERS Safety Report 24749221 (Version 1)
Quarter: 2024Q4

REPORT INFORMATION
  Report Type: Spontaneous
  Country: GB (occurrence: GB)
  Receive Date: 20241218
  Receipt Date: 20241218
  Transmission Date: 20250115
  Serious: Yes (Other)
  Sender: BAXTER
  Company Number: None

PATIENT
  Age: 78 Year
  Sex: Female

DRUGS (20)
  1. METRONIDAZOLE [Suspect]
     Active Substance: METRONIDAZOLE
     Dosage: DOSE: 500 MG, DOSAGE TEXT:500 MG IN 100ML INFUSION
     Route: 065
  2. OXYCODONE [Concomitant]
     Active Substance: OXYCODONE
     Dosage: 5 MG / 5 ML ORAL SOLUTION SUGAR FREE TAKE 5 MLS UP TO SIX TIMES A DAY WHEN REQUIRED FOR BREAKTHROUGH
  3. LACTULOSE [Concomitant]
     Active Substance: LACTULOSE
     Dosage: 3.1-3.7 G / 5 ML ORAL SOLUTION TWO 5 ML SPOONFULS TO BE TAKEN TWICE A DAY PRN - DOESN^T USE
  4. LANSOPRAZOLE [Concomitant]
     Active Substance: LANSOPRAZOLE
     Dosage: 30 MG GASTRO-RESISTANT CAPSULES ONE TO BE TAKEN TWICE A DAY
  5. BIMATOPROST [Concomitant]
     Active Substance: BIMATOPROST
     Dosage: 300 MICROGRAMS / ML EYE DROPS 0.4 ML UNIT DOSE PRESERVATIVE FREE ONE DROP TO BE USED IN BOTH EYES ON
  6. INSULIN GLARGINE [Concomitant]
     Active Substance: INSULIN GLARGINE
     Dosage: 100 UNITS / ML SOLUTION FOR INJECTION 3 ML PRE-FILLED PENS FOR SUBCUTANEOUS INJECTION, ACCORDING TO
  7. SENNA [Concomitant]
     Active Substance: SENNA LEAF\SENNOSIDES\SENNOSIDES A AND B
     Dosage: 7.5 MG TABLETS TWO TO BE TAKEN AT NIGHT IF NEEDED FOR CONSTIPATION - RARELY USES
  8. BECLOMETHASONE DIPROPIONATE\FORMOTEROL FUMARATE [Concomitant]
     Active Substance: BECLOMETHASONE DIPROPIONATE\FORMOTEROL FUMARATE
     Dosage: 100 MICROGRAMS / DOSE / 6 MICROGRAMS / DOSE INHALER TWO PUFFS TO BE INHALED TWICE A DAY - USES PRN
  9. PREGABALIN [Concomitant]
     Active Substance: PREGABALIN
     Dosage: 50 MG CAPSULES ONE TO BE TAKEN TWICE A DAY - TAKES 1 ON
  10. DALTEPARIN [Concomitant]
     Active Substance: DALTEPARIN
     Dosage: 5,000UNITS OD SC
  11. LOSARTAN [Concomitant]
     Active Substance: LOSARTAN
     Dosage: 100 MG TABLETS ONE TO BE TAKEN EACH DAY - REDUCED TO 25MG NOW (LAST ADMISSION)
  12. MOMETASONE [Concomitant]
     Active Substance: MOMETASONE
     Dosage: 50 MICROGRAMS / DOSE NASAL SPRAY ONE SPRAY TO BE USED IN EACH NOSTRIL ONCE A DAY
  13. CREON [Concomitant]
     Active Substance: PANCRELIPASE AMYLASE\PANCRELIPASE LIPASE\PANCRELIPASE PROTEASE
     Dosage: 10000 GASTRO-RESISTANT CAPSULES TAKE UP TO 9 WITH MEALS AND 8 WITH SNACKS
  14. OXETACAINE [Concomitant]
     Active Substance: OXETHAZAINE
     Dosage: NAME:ANTACID AND OXETACAINE, ORAL SUSPENSION TWO 5 ML SPOONFULS TO BE TAKEN FOUR TIMES A DAY
  15. HUMALOG KWIKPEN [Concomitant]
     Active Substance: INSULIN LISPRO
     Dosage: NAME: HUMALOG KWIKPEN, 100 UNITS / ML SOLUTION FOR INJECTION 3 ML PRE-FILLED PENS FOR SUBCUTANEOUS I
  16. BRICANYL [Concomitant]
     Active Substance: TERBUTALINE SULFATE
     Dosage: 500 MICROGRAMS / DOSE TURBOHALER ONE PUFF TO BE INHALED FOUR TIMES A DAY WHEN REQUIRED
  17. DOCUSATE [Concomitant]
     Active Substance: DOCUSATE
     Dosage: 100 MG CAPSULES TWO TO BE TAKEN TWICE A DAY WHEN REQUIRED - RARELY USES
  18. CYCLIZINE [Concomitant]
     Active Substance: CYCLIZINE
     Dosage: 50 MG TABLETS ONE TO BE TAKEN UP TO THREE TIMES A DAY WHEN REQUIRED - AFTER CHEMO
  19. BISOPROLOL [Concomitant]
     Active Substance: BISOPROLOL
     Dosage: 1.25 MG TABLETS TAKE ONE EACH DAY HALF AN HOUR BEFORE BREAKFAST
  20. CLOPIDOGREL [Concomitant]
     Active Substance: CLOPIDOGREL BISULFATE
     Dosage: 75 MG TABLETS ONE TO BE TAKEN EACH DAY - STOPPED

REACTIONS (2)
  - Hallucination [Unknown]
  - Tremor [Unknown]
